FAERS Safety Report 9342922 (Version 3)
Quarter: 2013Q3

REPORT INFORMATION
  Report Type: Spontaneous
  Country: FR (occurrence: None)
  Receive Date: 20130607
  Receipt Date: 20130715
  Transmission Date: 20140515
  Serious: Yes (Hospitalization)
  Sender: FDA-Public Use
  Company Number: 7215037

PATIENT
  Age: 3 Year
  Sex: Female

DRUGS (1)
  1. LEVOTHYROX [Suspect]
     Indication: ACCIDENTAL EXPOSURE TO PRODUCT BY CHILD
     Dosage: 1700 MCG (34 DF)
     Route: 048
     Dates: start: 20130510, end: 20130510

REACTIONS (3)
  - Rash macular [None]
  - Erythema [None]
  - Accidental exposure to product by child [None]
